FAERS Safety Report 6695290-9 (Version None)
Quarter: 2010Q2

REPORT INFORMATION
  Report Type: 
  Country: None (occurrence: None)
  Receive Date: 20100423
  Receipt Date: 20100419
  Transmission Date: 20101027
  Serious: Yes (Hospitalization, Disabling)
  Sender: FDA-Public Use
  Company Number: US-MERCK-0803USA03432

PATIENT
  Age: 62 Year
  Sex: Female
  Weight: 61 kg

DRUGS (3)
  1. FOSAMAX [Suspect]
     Indication: OSTEOPOROSIS
     Route: 048
     Dates: end: 20060901
  2. LIPITOR [Concomitant]
     Indication: BLOOD CHOLESTEROL INCREASED
     Route: 065
     Dates: start: 19990101
  3. SYNTHROID [Concomitant]
     Indication: HYPOTHYROIDISM
     Route: 065
     Dates: start: 20010101

REACTIONS (42)
  - ABDOMINAL PAIN LOWER [None]
  - ABSCESS [None]
  - ANXIETY [None]
  - ARTHRALGIA [None]
  - ARTHRITIS [None]
  - BACK DISORDER [None]
  - BONE ATROPHY [None]
  - BONE DENSITY DECREASED [None]
  - BURSITIS [None]
  - CHANGE OF BOWEL HABIT [None]
  - CONSTIPATION [None]
  - DEPRESSION [None]
  - DEVICE RELATED INFECTION [None]
  - EXOSTOSIS [None]
  - GASTROENTERITIS VIRAL [None]
  - GASTROOESOPHAGEAL REFLUX DISEASE [None]
  - HEAD INJURY [None]
  - HYPERLIPIDAEMIA [None]
  - HYPERTENSION [None]
  - INCISION SITE PAIN [None]
  - INFECTION [None]
  - INFLAMMATORY PAIN [None]
  - INSOMNIA [None]
  - JAW DISORDER [None]
  - LARYNGITIS [None]
  - LIMB DISCOMFORT [None]
  - LOWER LIMB FRACTURE [None]
  - MALAISE [None]
  - MOUTH HAEMORRHAGE [None]
  - MOUTH ULCERATION [None]
  - MUSCLE RUPTURE [None]
  - MUSCULOSKELETAL CHEST PAIN [None]
  - OESOPHAGITIS [None]
  - ORAL FIBROMA [None]
  - ORAL INFECTION [None]
  - ORAL PAIN [None]
  - OSTEOARTHRITIS [None]
  - ROAD TRAFFIC ACCIDENT [None]
  - ROTATOR CUFF SYNDROME [None]
  - SLEEP APNOEA SYNDROME [None]
  - STRESS [None]
  - TENDON DISORDER [None]
